FAERS Safety Report 4317464-4 (Version None)
Quarter: 2004Q1

REPORT INFORMATION
  Report Type: 
  Country: None (occurrence: None)
  Receive Date: 20040312
  Receipt Date: 20040303
  Transmission Date: 20041129
  Serious: Yes (Hospitalization, Other)
  Sender: FDA-Public Use
  Company Number: 2004-02-1714

PATIENT
  Age: 43 Year
  Sex: Male
  Weight: 59 kg

DRUGS (6)
  1. GENTAMICIN SULFATE [Suspect]
     Indication: STAPHYLOCOCCAL INFECTION
     Dosage: 160 MG QD INTRAVENOUS
     Route: 042
     Dates: start: 20040120, end: 20040128
  2. PERISTALTINE (CASCARA) [Concomitant]
  3. OMEPRAZOLE [Concomitant]
  4. MS CONTIN [Concomitant]
  5. PRIMPERAN INJ [Concomitant]
  6. VANCOCIN INJECTABLE POWDER [Suspect]
     Indication: STAPHYLOCOCCAL INFECTION
     Dosage: 2 G QD INTRAVENOUS
     Route: 042
     Dates: start: 20040122, end: 20040128

REACTIONS (7)
  - BILE DUCT STENOSIS [None]
  - CHOLESTASIS [None]
  - DRUG INTERACTION [None]
  - INFLAMMATION [None]
  - OVERDOSE [None]
  - RENAL FAILURE ACUTE [None]
  - STAPHYLOCOCCAL SEPSIS [None]
